FAERS Safety Report 7029403 (Version 3)
Quarter: 2013Q2

REPORT INFORMATION
  Report Type: Spontaneous
  Country: US (occurrence: US)
  Receive Date: 20090622
  Receipt Date: 20130506
  Transmission Date: 20140414
  Serious: Yes (Life-Threatening, Hospitalization, Other)
  Sender: FDA-Public Use
  Company Number: US-ASTRAZENECA-2009UW15827

PATIENT
  Age: 63 Year
  Sex: Female

DRUGS (48)
  1. SEROQUEL [Suspect]
     Indication: BIPOLAR DISORDER
     Route: 048
     Dates: start: 1990
  2. SEROQUEL [Suspect]
     Indication: INSOMNIA
     Route: 048
     Dates: start: 1990
  3. SEROQUEL [Suspect]
     Indication: HYPOMANIA
     Route: 048
     Dates: start: 1990
  4. SEROQUEL [Suspect]
     Indication: BIPOLAR DISORDER
     Dosage: 12 TO 50 MG
     Route: 048
     Dates: start: 2004
  5. SEROQUEL [Suspect]
     Indication: INSOMNIA
     Dosage: 12 TO 50 MG
     Route: 048
     Dates: start: 2004
  6. SEROQUEL [Suspect]
     Indication: HYPOMANIA
     Dosage: 12 TO 50 MG
     Route: 048
     Dates: start: 2004
  7. PAXIL [Suspect]
     Indication: BIPOLAR DISORDER
     Route: 065
     Dates: start: 1990
  8. PAXIL [Suspect]
     Indication: BIPOLAR DISORDER
     Route: 048
     Dates: start: 1991
  9. PAXIL [Suspect]
     Indication: BIPOLAR DISORDER
     Route: 048
     Dates: start: 1999
  10. PAXIL [Suspect]
     Indication: BIPOLAR DISORDER
     Route: 048
  11. PAXIL [Suspect]
     Indication: BIPOLAR DISORDER
     Route: 048
  12. PAXIL [Suspect]
     Indication: BIPOLAR DISORDER
     Dosage: 25 MG (RANGING FROM 12.5 TO 3.5 MG)
     Route: 048
  13. PAXIL [Suspect]
     Indication: BIPOLAR DISORDER
     Route: 048
     Dates: start: 20081217
  14. VALTREX [Suspect]
     Indication: HERPES ZOSTER
     Route: 048
     Dates: start: 1982
  15. VALTREX [Suspect]
     Indication: GENITAL HERPES
     Route: 048
     Dates: start: 1982
  16. VALTREX [Suspect]
     Indication: POST HERPETIC NEURALGIA
     Route: 048
     Dates: start: 1982
  17. VALTREX [Suspect]
     Indication: HERPES ZOSTER
     Route: 048
     Dates: start: 1982
  18. VALTREX [Suspect]
     Indication: HERPES ZOSTER
     Route: 048
  19. VALTREX [Suspect]
     Indication: GENITAL HERPES
     Route: 048
  20. VALTREX [Suspect]
     Indication: POST HERPETIC NEURALGIA
     Route: 048
  21. VALTREX [Suspect]
     Indication: HERPES ZOSTER
     Route: 048
  22. VALTREX [Suspect]
     Indication: HERPES ZOSTER
     Route: 048
     Dates: start: 2000
  23. VALTREX [Suspect]
     Indication: GENITAL HERPES
     Route: 048
     Dates: start: 2000
  24. VALTREX [Suspect]
     Indication: POST HERPETIC NEURALGIA
     Route: 048
     Dates: start: 2000
  25. VALTREX [Suspect]
     Indication: HERPES ZOSTER
     Route: 048
     Dates: start: 2000
  26. VALTREX [Suspect]
     Indication: HERPES ZOSTER
     Route: 048
  27. VALTREX [Suspect]
     Indication: GENITAL HERPES
     Route: 048
  28. VALTREX [Suspect]
     Indication: POST HERPETIC NEURALGIA
     Route: 048
  29. VALTREX [Suspect]
     Indication: HERPES ZOSTER
     Route: 048
  30. VALTREX [Suspect]
     Indication: HERPES ZOSTER
     Route: 048
     Dates: start: 20081217
  31. VALTREX [Suspect]
     Indication: GENITAL HERPES
     Route: 048
     Dates: start: 20081217
  32. VALTREX [Suspect]
     Indication: POST HERPETIC NEURALGIA
     Route: 048
     Dates: start: 20081217
  33. VALTREX [Suspect]
     Indication: HERPES ZOSTER
     Route: 048
     Dates: start: 20081217
  34. VALTREX [Suspect]
     Indication: HERPES ZOSTER
     Route: 048
     Dates: start: 20091217
  35. VALTREX [Suspect]
     Indication: GENITAL HERPES
     Route: 048
     Dates: start: 20091217
  36. VALTREX [Suspect]
     Indication: POST HERPETIC NEURALGIA
     Route: 048
     Dates: start: 20091217
  37. VALTREX [Suspect]
     Indication: HERPES ZOSTER
     Route: 048
     Dates: start: 20091217
  38. ZOVIRAX [Suspect]
     Indication: GENITAL HERPES
     Route: 065
     Dates: start: 1978, end: 2000
  39. ZOVIRAX [Suspect]
     Indication: HERPES ZOSTER
     Route: 065
     Dates: start: 1978, end: 2000
  40. LITHIUM [Suspect]
  41. FLAXSEED OIL [Concomitant]
     Dates: start: 1990
  42. FLAXSEED OIL [Concomitant]
     Dates: start: 1991
  43. KLONOPIN [Concomitant]
  44. COZAAR [Concomitant]
  45. THYROLAR [Concomitant]
  46. ACYCLOVIR [Concomitant]
     Indication: GENITAL HERPES
     Dates: start: 1974
  47. ACYCLOVIR [Concomitant]
     Indication: HERPES ZOSTER
     Dates: start: 1974
  48. TRILAFON [Concomitant]
     Dates: start: 1991, end: 2004

REACTIONS (19)
  - Rectal prolapse [Unknown]
  - Liver disorder [Unknown]
  - Coma [Recovered/Resolved]
  - Cervical vertebral fracture [Recovered/Resolved]
  - Bronchitis [Recovering/Resolving]
  - Cataract [Not Recovered/Not Resolved]
  - Pneumonia [Recovering/Resolving]
  - Herpes zoster [Not Recovered/Not Resolved]
  - Post herpetic neuralgia [Not Recovered/Not Resolved]
  - Hypomania [Not Recovered/Not Resolved]
  - Renal failure [Unknown]
  - Pyrexia [Recovering/Resolving]
  - Emotional disorder [Not Recovered/Not Resolved]
  - Malaise [Not Recovered/Not Resolved]
  - Drug dependence [Not Recovered/Not Resolved]
  - Insomnia [Not Recovered/Not Resolved]
  - Genital herpes [Unknown]
  - Adverse event [Not Recovered/Not Resolved]
  - Drug dose omission [Unknown]
